FAERS Safety Report 6414992-2 (Version None)
Quarter: 2009Q4

REPORT INFORMATION
  Report Type: 
  Country: None (occurrence: None)
  Receive Date: 20091026
  Receipt Date: 20090929
  Transmission Date: 20100525
  Serious: Yes (Other)
  Sender: FDA-Public Use
  Company Number: US-ABBOTT-09P-163-0599901-00

PATIENT
  Sex: Female
  Weight: 50.394 kg

DRUGS (3)
  1. LUPRON DEPOT [Suspect]
     Indication: ENDOMETRIOSIS
     Route: 030
     Dates: start: 20090929, end: 20090929
  2. PAXIL [Concomitant]
     Indication: DRUG USE FOR UNKNOWN INDICATION
  3. ULTRAM [Concomitant]
     Indication: DRUG USE FOR UNKNOWN INDICATION

REACTIONS (3)
  - ANAPHYLACTIC REACTION [None]
  - FEELING HOT [None]
  - PYREXIA [None]
